FAERS Safety Report 9240522 (Version 1)
Quarter: 2013Q1

REPORT INFORMATION
  Report Type: Spontaneous
  Country: US (occurrence: None)
  Receive Date: 20121120
  Receipt Date: 20121120
  Transmission Date: 20140127
  Serious: No
  Sender: FDA-Public Use
  Company Number: 1000039285

PATIENT
  Age: 39 Year
  Sex: Male

DRUGS (2)
  1. VIIBRYD (VILAZODONE HYDROCHLORIDE) (10 MILLIGRAM, TABLETS) [Suspect]
     Indication: NERVOUSNESS
     Dosage: 1 IN 1 D
     Route: 048
     Dates: start: 20120923, end: 20120929
  2. VIIBRYD (VILAZODONE HYDROCHLORIDE) [Suspect]
     Indication: NERVOUSNESS
     Dosage: 1 IN 1 D
     Route: 048
     Dates: start: 20120930, end: 20121002

REACTIONS (5)
  - Dizziness [None]
  - Paraesthesia [None]
  - Erectile dysfunction [None]
  - Ejaculation delayed [None]
  - Off label use [None]
